FAERS Safety Report 4334519-9 (Version None)
Quarter: 2004Q2

REPORT INFORMATION
  Report Type: 
  Country: None (occurrence: None)
  Receive Date: 20040407
  Receipt Date: 20040325
  Transmission Date: 20050107
  Serious: Yes (Hospitalization)
  Sender: FDA-Public Use
  Company Number: US-GLAXOSMITHKLINE-B0327924A

PATIENT
  Age: 22 Year
  Sex: Male

DRUGS (2)
  1. ZYBAN [Suspect]
     Indication: SUICIDE ATTEMPT
     Dosage: 1500MG PER DAY
     Route: 048
     Dates: start: 20040312, end: 20040312
  2. ALEVE [Suspect]
     Indication: SUICIDE ATTEMPT
     Dosage: 1320MG PER DAY
     Route: 048
     Dates: start: 20040312, end: 20040312

REACTIONS (2)
  - OVERDOSE [None]
  - SUICIDE ATTEMPT [None]
